FAERS Safety Report 17466906 (Version 1)
Quarter: 2020Q1

REPORT INFORMATION
  Report Type: Spontaneous
  Country: US (occurrence: US)
  Receive Date: 20200214
  Receipt Date: 20200214
  Transmission Date: 20200409
  Serious: Yes (Hospitalization)
  Sender: FDA-Public Use
  Company Number: None

PATIENT
  Sex: Male

DRUGS (7)
  1. NIFEDIPINE. [Concomitant]
     Active Substance: NIFEDIPINE
  2. PANTOPRAZOLE [Concomitant]
     Active Substance: PANTOPRAZOLE
  3. NABUMETONE. [Concomitant]
     Active Substance: NABUMETONE
  4. ENBREL [Suspect]
     Active Substance: ETANERCEPT
     Indication: ARTHRITIS
     Route: 058
     Dates: start: 20171201
  5. IRBESARTAN. [Concomitant]
     Active Substance: IRBESARTAN
  6. DULOXETINE. [Concomitant]
     Active Substance: DULOXETINE
  7. BUPROPN HCL [Concomitant]
     Active Substance: BUPROPION HYDROCHLORIDE

REACTIONS (2)
  - Cerebrovascular accident [None]
  - Therapy cessation [None]
